FAERS Safety Report 7882844-7 (Version None)
Quarter: 2011Q4

REPORT INFORMATION
  Report Type: 
  Country: None (occurrence: None)
  Receive Date: 20111101
  Receipt Date: 20110621
  Transmission Date: 20120403
  Serious: No
  Sender: FDA-Public Use
  Company Number: US-AMGEN-USASP2011031837

PATIENT
  Age: 47 Year
  Sex: Male

DRUGS (5)
  1. ENBREL [Suspect]
     Indication: ANKYLOSING SPONDYLITIS
     Dosage: 50 MG, QWK
  2. ASPIRIN [Concomitant]
  3. ISONIAZID [Concomitant]
  4. ALLOPURINOL [Concomitant]
  5. TOPROL-XL [Concomitant]

REACTIONS (1)
  - INJECTION SITE CELLULITIS [None]
